FAERS Safety Report 5848711-5 (Version None)
Quarter: 2008Q3

REPORT INFORMATION
  Report Type: 
  Country: None (occurrence: None)
  Receive Date: 20080818
  Receipt Date: 20080813
  Transmission Date: 20090109
  Serious: Yes (Hospitalization)
  Sender: FDA-Public Use
  Company Number: US-BOEHRINGER INGELHEIM GMBH, GERMANY-2008-BP-12668RO

PATIENT
  Age: 74 Year
  Sex: Female
  Weight: 56 kg

DRUGS (31)
  1. PREDNISONE TAB [Suspect]
     Indication: PNEUMONIA
     Route: 048
     Dates: start: 20080716, end: 20080720
  2. PREDNISONE TAB [Suspect]
     Route: 048
     Dates: start: 20080721, end: 20080725
  3. CANGRELOR VS PLACEBO [Suspect]
     Indication: PERCUTANEOUS CORONARY INTERVENTION
     Route: 042
     Dates: start: 20080715, end: 20080715
  4. CLOPIDOGREL [Suspect]
     Indication: PERCUTANEOUS CORONARY INTERVENTION
     Route: 048
     Dates: start: 20080715, end: 20080715
  5. METHYLPREDNISOLONE SODIUM SUCCINATE [Suspect]
     Indication: PNEUMONIA
     Route: 042
     Dates: start: 20080715, end: 20080715
  6. BIVALIRUDIN [Concomitant]
  7. IPRATROPIUM BROMIDE [Concomitant]
     Dates: start: 20080715
  8. GUAIFENESIN/DM SR [Concomitant]
     Dates: start: 20080715
  9. CEFTRIAXONE [Concomitant]
     Dates: start: 20080716, end: 20080717
  10. ALBUTEROL [Concomitant]
     Dates: start: 20080715
  11. ZOLPIDEM [Concomitant]
     Dates: start: 20080715
  12. MELOXICAM [Concomitant]
     Dates: start: 20080715
  13. BENAZEPRIL HYDROCHLORIDE [Concomitant]
     Dates: start: 20080715
  14. OXYBUTYNIN [Concomitant]
     Dates: start: 20080715
  15. HYDROCHLOROTHIAZIDE [Concomitant]
     Dates: start: 20080715
  16. SIMVASTATIN [Concomitant]
     Dates: start: 20080716
  17. CLOPIDOGREL [Concomitant]
     Dates: start: 20080710
  18. FLUTICASONE PROPIONATE/SALMETEROL XINAFOATE [Concomitant]
  19. DILTIAZEM CD [Concomitant]
     Dates: start: 20080715
  20. THEOPHYLLINE-SR [Concomitant]
     Dates: start: 20080715
  21. OYSTER SHELL CALCIUM WITH VITAMIN D [Concomitant]
  22. AZITHROMYCIN [Concomitant]
  23. ASPIRIN [Concomitant]
  24. ENOXAPARIN SODIUM [Concomitant]
     Indication: THROMBOSIS PROPHYLAXIS
  25. FLUCONAZOLE [Concomitant]
  26. MOXIFLOXACIN HCL [Concomitant]
  27. PIPERACILLIN SODIUM/TAZOBACTAM SODIUM [Concomitant]
  28. TIGECYCLINE [Concomitant]
  29. FUROSEMIDE [Concomitant]
  30. LOW MOLECULAR WEIGHT HEPARIN [Concomitant]
  31. INSULIN ASPART [Concomitant]
     Dates: start: 20080716, end: 20080721

REACTIONS (2)
  - BLOOD GLUCOSE INCREASED [None]
  - LEUKOCYTOSIS [None]
